FAERS Safety Report 26181632 (Version 1)
Quarter: 2025Q4

REPORT INFORMATION
  Report Type: Report from Study
  Country: US (occurrence: US)
  Receive Date: 20251221
  Receipt Date: 20251221
  Transmission Date: 20260118
  Serious: Yes (unspecified)
  Sender: CALIFORNIA DEPARTMENT OF PUBLIC HEALTH
  Company Number: US-California Department of Public Health-2190917

PATIENT
  Age: 2 Week
  Sex: Male
  Weight: 4.8 kg

DRUGS (1)
  1. BABYBIG [Suspect]
     Active Substance: HUMAN BOTULINUM NEUROTOXIN A/B IMMUNE GLOBULIN
     Indication: Botulism
     Dates: start: 20251127, end: 20251127

REACTIONS (2)
  - Pneumatosis intestinalis [Recovered/Resolved]
  - Stertor [Recovered/Resolved]

NARRATIVE: CASE EVENT DATE: 20251128
